FAERS Safety Report 7606283-9 (Version None)
Quarter: 2011Q3

REPORT INFORMATION
  Report Type: 
  Country: None (occurrence: None)
  Receive Date: 20110713
  Receipt Date: 20110629
  Transmission Date: 20111222
  Serious: Yes (Hospitalization, Other)
  Sender: FDA-Public Use
  Company Number: US-BAYER-201042062NA

PATIENT
  Age: 40 Year
  Sex: Female
  Weight: 86.168 kg

DRUGS (3)
  1. YASMIN [Suspect]
     Indication: ORAL CONTRACEPTION
     Dosage: UNK
     Dates: start: 20060701, end: 20061101
  2. DROSPIRENONE AND ETHINYL ESTRADIOL [Suspect]
     Dosage: UNK UNK, QD
     Route: 048
     Dates: start: 20080901, end: 20100201
  3. DROSPIRENONE AND ETHINYL ESTRADIOL [Suspect]
     Route: 048
     Dates: start: 20060701

REACTIONS (1)
  - DEEP VEIN THROMBOSIS [None]
